FAERS Safety Report 5979169-3 (Version None)
Quarter: 2008Q4

REPORT INFORMATION
  Report Type: 
  Country: None (occurrence: None)
  Receive Date: 20081204
  Receipt Date: 20081124
  Transmission Date: 20090506
  Serious: Yes (Other)
  Sender: FDA-Public Use
  Company Number: US-AMGEN-US320563

PATIENT
  Age: 66 Year

DRUGS (3)
  1. ARANESP [Suspect]
     Indication: DIALYSIS
     Route: 065
     Dates: start: 20081001
  2. EPOGEN [Suspect]
     Indication: DIALYSIS
     Route: 065
     Dates: start: 20060101
  3. IRON [Concomitant]
     Route: 042

REACTIONS (1)
  - APLASIA PURE RED CELL [None]
